FAERS Safety Report 25755411 (Version 1)
Quarter: 2025Q3

REPORT INFORMATION
  Report Type: Spontaneous
  Country: EU (occurrence: EU)
  Receive Date: 20250903
  Receipt Date: 20250903
  Transmission Date: 20251020
  Serious: Yes (Death, Hospitalization, Other)
  Sender: GLAND PHARMA LTD
  Company Number: EU-GLANDPHARMA-ES-2025GLNLIT01755

PATIENT
  Age: 84 Year
  Sex: Female

DRUGS (1)
  1. ENOXAPARIN SODIUM [Suspect]
     Active Substance: ENOXAPARIN SODIUM
     Indication: Anticoagulant therapy
     Route: 042

REACTIONS (2)
  - Shock haemorrhagic [Fatal]
  - Haematoma [Fatal]
